FAERS Safety Report 18837599 (Version 1)
Quarter: 2021Q1

REPORT INFORMATION
  Report Type: Spontaneous
  Country: US (occurrence: US)
  Receive Date: 20210203
  Receipt Date: 20210203
  Transmission Date: 20210419
  Serious: No
  Sender: FDA-Public Use
  Company Number: US-ALLERGAN-2026882US

PATIENT
  Sex: Female
  Weight: 90.7 kg

DRUGS (11)
  1. SUMATRIPTAN. [Concomitant]
     Active Substance: SUMATRIPTAN
     Indication: HEADACHE
     Dosage: 6 MG/0.5 ML  INJECT 1 PEN AS  NEEDED AT ONSET AS NEEDED
     Dates: start: 20200421, end: 20200715
  2. MAXALT [Concomitant]
     Active Substance: RIZATRIPTAN BENZOATE
     Indication: HEADACHE
     Dosage: 10 MG, 1 TABLET  AS NEEDED
     Dates: start: 202001, end: 20200715
  3. BOTOX [Suspect]
     Active Substance: ONABOTULINUMTOXINA
     Indication: MIGRAINE
     Dosage: 200 UNITS, SINGLE
     Dates: start: 20200519, end: 20200519
  4. BOTOX [Suspect]
     Active Substance: ONABOTULINUMTOXINA
     Dosage: 200 UNITS, SINGLE
     Dates: start: 20200217, end: 20200217
  5. REGLAN [Concomitant]
     Active Substance: METOCLOPRAMIDE HYDROCHLORIDE
     Indication: PROPHYLAXIS
     Dosage: 10 MG, 1 TABLET  3 TIMES A DAY  AS NEEDED
     Dates: start: 20200421
  6. IMITREX [Concomitant]
     Active Substance: SUMATRIPTAN SUCCINATE
  7. AMITRIPTYLINE [Concomitant]
     Active Substance: AMITRIPTYLINE
     Indication: MIGRAINE
     Dosage: 150 MG TABLET  DAILY AT  BEDTIME
     Dates: start: 20200706, end: 20200715
  8. FLEXERIL [Concomitant]
     Active Substance: CYCLOBENZAPRINE HYDROCHLORIDE
     Indication: MIGRAINE
     Dosage: 10 MG, 3 TIMES  A  DAY AS NEEDED
     Dates: start: 20200715
  9. CYPROHEPTADINE. [Concomitant]
     Active Substance: CYPROHEPTADINE
     Indication: PROPHYLAXIS
     Dosage: 4 MG, 2 TABLETS  AT BEDTIME AS NEEDED
     Dates: start: 20200715
  10. TOPAMAX MIGRAENE [Concomitant]
     Active Substance: TOPIRAMATE
     Dosage: 100 MG, 1 TB BID
     Dates: start: 202001, end: 20200715
  11. SEROQUEL [Concomitant]
     Active Substance: QUETIAPINE FUMARATE
     Indication: DEPRESSION
     Dosage: 100 MG, 1 TB AT BEDTIME
     Dates: start: 20180419, end: 20200715

REACTIONS (3)
  - Pregnancy [Unknown]
  - Back pain [Unknown]
  - Vaginal haemorrhage [Unknown]
